FAERS Safety Report 5523514-X (Version None)
Quarter: 2007Q4

REPORT INFORMATION
  Report Type: 
  Country: None (occurrence: None)
  Receive Date: 20071121
  Receipt Date: 20071114
  Transmission Date: 20080405
  Serious: Yes (Other)
  Sender: FDA-Public Use
  Company Number: GB-ROCHE-508944

PATIENT
  Age: 83 Year
  Sex: Male

DRUGS (18)
  1. ROCEPHIN [Suspect]
     Route: 030
     Dates: start: 20070715, end: 20070716
  2. BUDESONIDE/FORMOTEROL [Concomitant]
  3. PERINDOPRIL TERT-BUTYLAMINE [Concomitant]
  4. INDAPAMIDE [Concomitant]
  5. ISOSORBIDE MONONITRATE [Concomitant]
  6. SOTALOL HYDROCHLORIDE [Concomitant]
  7. ESOMEPRAZOLE [Concomitant]
  8. ATORVASTATIN CALCIUM [Concomitant]
  9. LOPERAMIDE HYDROCHLORIDE [Concomitant]
  10. HYPROMELLOSE EYE DROPS [Concomitant]
     Route: 047
  11. PYRIDOXINE HYDROCHLORIDE [Concomitant]
  12. FOLIC ACID [Concomitant]
  13. SELENIUM SULPHIDE [Concomitant]
  14. CALCIUM/VITAMIN D [Concomitant]
  15. GLYCERYL TRINITRATE SPRAY [Concomitant]
  16. CLOPIDOGREL [Concomitant]
     Dosage: CLOPIDOGREL HYDROGEN SULPHATE
  17. CO-DYDRAMOL [Concomitant]
     Dosage: TWO EVERY SIX HOURS AS REQUIRED
  18. BECLOMETASONE [Concomitant]

REACTIONS (1)
  - ANGINA PECTORIS [None]
